FAERS Safety Report 6240263-3 (Version None)
Quarter: 2009Q2

REPORT INFORMATION
  Report Type: 
  Country: None (occurrence: None)
  Receive Date: 20090623
  Receipt Date: 20080519
  Transmission Date: 20091009
  Serious: No
  Sender: FDA-Public Use
  Company Number: US-ASTRAZENECA-2008UW10229

PATIENT
  Age: 81 Year
  Sex: Female
  Weight: 72.6 kg

DRUGS (8)
  1. PULMICORT RESPULES [Suspect]
     Indication: RESPIRATORY DISORDER
     Route: 055
  2. OXYGEN [Concomitant]
  3. CARDIA XL [Concomitant]
  4. SIMVASTATIN [Concomitant]
  5. IRON [Concomitant]
  6. BENICAR [Concomitant]
  7. LORAZEPAM [Concomitant]
  8. ASPIRIN [Concomitant]

REACTIONS (1)
  - DYSPNOEA [None]
